FAERS Safety Report 10129812 (Version 1)
Quarter: 2014Q2

REPORT INFORMATION
  Report Type: Spontaneous
  Country: US (occurrence: None)
  Receive Date: 20140425
  Receipt Date: 20140425
  Transmission Date: 20141212
  Serious: Yes (Hospitalization)
  Sender: FDA-Public Use
  Company Number: None

PATIENT
  Age: 68 Year
  Sex: Male
  Weight: 75.9 kg

DRUGS (1)
  1. OFATUMUMAB [Suspect]
     Dates: end: 20140326

REACTIONS (4)
  - Hypotension [None]
  - Atelectasis [None]
  - Pyrexia [None]
  - Lung infiltration [None]
